FAERS Safety Report 14709151 (Version 1)
Quarter: 2018Q1

REPORT INFORMATION
  Report Type: Spontaneous
  Country: US (occurrence: US)
  Receive Date: 20180329
  Receipt Date: 20180329
  Transmission Date: 20180509
  Serious: Yes (Hospitalization)
  Sender: FDA-Public Use
  Company Number: None

PATIENT
  Age: 32 Year
  Sex: Male
  Weight: 131.1 kg

DRUGS (5)
  1. METHOTREXATE. [Suspect]
     Active Substance: METHOTREXATE
     Dates: end: 20180131
  2. MERCAPTOPURINE. [Suspect]
     Active Substance: MERCAPTOPURINE
     Dates: end: 20180316
  3. ONCASPAR [Suspect]
     Active Substance: PEGASPARGASE
     Dates: end: 20180124
  4. CYTARABINE. [Suspect]
     Active Substance: CYTARABINE
     Dates: end: 20180316
  5. CYCLOPHOSPHAMIDE. [Suspect]
     Active Substance: CYCLOPHOSPHAMIDE
     Dates: end: 20180207

REACTIONS (11)
  - Vomiting [None]
  - Nausea [None]
  - Sepsis [None]
  - Abdominal pain [None]
  - Hypovolaemia [None]
  - Tachycardia [None]
  - Pyrexia [None]
  - Hypotension [None]
  - Cytokine release syndrome [None]
  - Chills [None]
  - Diarrhoea [None]

NARRATIVE: CASE EVENT DATE: 20180316
